FAERS Safety Report 8323367-0 (Version None)
Quarter: 2012Q2

REPORT INFORMATION
  Report Type: 
  Country: None (occurrence: None)
  Receive Date: 20120430
  Receipt Date: 20120419
  Transmission Date: 20120825
  Serious: Yes (Hospitalization)
  Sender: FDA-Public Use
  Company Number: US-BAXTER-2012BAX003577

PATIENT
  Sex: Female
  Weight: 67.2 kg

DRUGS (20)
  1. LEVOXYL [Concomitant]
     Indication: HYPERTHYROIDISM
     Route: 048
     Dates: start: 19890101
  2. RAZADYNE ER [Concomitant]
     Route: 048
     Dates: start: 20050715
  3. COENZYME Q10 [Concomitant]
     Indication: SUPPLEMENTATION THERAPY
     Route: 048
     Dates: start: 20100101
  4. GAMMAGARD LIQUID [Suspect]
     Route: 042
     Dates: start: 20120410
  5. EXELON [Concomitant]
     Route: 062
     Dates: start: 20080616
  6. SEROQUEL [Concomitant]
     Route: 048
     Dates: start: 20111010
  7. VITAMIN E [Concomitant]
     Indication: SUPPLEMENTATION THERAPY
     Route: 048
     Dates: start: 20041130
  8. CALCIUM [Concomitant]
     Indication: SUPPLEMENTATION THERAPY
     Route: 048
     Dates: start: 20080515
  9. DAILY MULTIVITAMIN [Concomitant]
     Indication: SUPPLEMENTATION THERAPY
     Route: 048
     Dates: start: 19940101
  10. ZETIA [Concomitant]
     Route: 048
     Dates: start: 20120330
  11. VITAMIN D [Concomitant]
     Indication: SUPPLEMENTATION THERAPY
     Route: 048
     Dates: start: 20090915
  12. ENABLEX [Concomitant]
     Route: 048
     Dates: start: 20120330, end: 20120409
  13. GAMMAGARD LIQUID [Suspect]
     Route: 042
     Dates: start: 20110324, end: 20120410
  14. SEROQUEL [Concomitant]
     Route: 048
     Dates: start: 20101020, end: 20110919
  15. NAMENDA [Concomitant]
     Route: 048
     Dates: start: 20090616
  16. CITALOPRAM [Concomitant]
     Indication: DEPRESSION
     Route: 048
     Dates: start: 20020101
  17. BONIVA [Concomitant]
     Indication: OSTEOPOROSIS
     Route: 048
     Dates: start: 20060601
  18. VITAMIN C [Concomitant]
     Indication: SUPPLEMENTATION THERAPY
     Route: 048
     Dates: start: 20041130
  19. R-FRACTION ALPHA LIPOIC ACID [Concomitant]
     Indication: SUPPLEMENTATION THERAPY
     Route: 048
     Dates: start: 20041130
  20. ENABLEX [Concomitant]
     Route: 048
     Dates: start: 20120410, end: 20120416

REACTIONS (2)
  - URINARY RETENTION [None]
  - NORMAL PRESSURE HYDROCEPHALUS [None]
